FAERS Safety Report 15021868 (Version 2)
Quarter: 2018Q3

REPORT INFORMATION
  Report Type: Spontaneous
  Country: US (occurrence: US)
  Receive Date: 20180618
  Receipt Date: 20180710
  Transmission Date: 20181010
  Serious: No
  Sender: FDA-Public Use
  Company Number: US-MERZ NORTH AMERICA, INC.-18MRZ-00310

PATIENT
  Sex: Female
  Weight: 56.75 kg

DRUGS (1)
  1. XEOMIN [Suspect]
     Active Substance: INCOBOTULINUMTOXINA
     Indication: UNINTENTIONAL USE FOR UNAPPROVED INDICATION
     Dosage: 12 IU (7 IU TO RIGHT TT AND 5 IU TO LEFT TT)
     Route: 058
     Dates: start: 20180614, end: 20180614

REACTIONS (2)
  - Off label use [Recovered/Resolved]
  - Unintentional use for unapproved indication [Recovered/Resolved]
